FAERS Safety Report 8789594 (Version 1)
Quarter: 2012Q4

REPORT INFORMATION
  Report Type: Spontaneous
  Country: US (occurrence: None)
  Receive Date: 20120910
  Receipt Date: 20120910
  Transmission Date: 20130627
  Serious: Yes (Other)
  Sender: FDA-Public Use
  Company Number: None

PATIENT
  Age: 50 Year
  Sex: Female
  Weight: 77.11 kg

DRUGS (1)
  1. CHANTIX [Suspect]
     Indication: SMOKING CESSATION THERAPY
     Dates: start: 20041020, end: 20041220

REACTIONS (7)
  - Depression [None]
  - Headache [None]
  - Dizziness [None]
  - Nuclear magnetic resonance imaging brain abnormal [None]
  - Lyme disease [None]
  - Disturbance in attention [None]
  - Multiple sclerosis [None]
